FAERS Safety Report 4743733-X (Version None)
Quarter: 2005Q3

REPORT INFORMATION
  Report Type: 
  Country: None (occurrence: None)
  Receive Date: 20050812
  Receipt Date: 20050811
  Transmission Date: 20060218
  Serious: Yes (Other)
  Sender: FDA-Public Use
  Company Number: US-GLAXOSMITHKLINE-A0569814A

PATIENT
  Sex: Female

DRUGS (4)
  1. PAXIL [Suspect]
     Indication: DEPRESSION
     Dosage: 30MG PER DAY
     Route: 048
  2. PAXIL [Suspect]
     Dosage: 25MG PER DAY
     Route: 048
  3. KLONOPIN [Concomitant]
  4. SYNTHROID [Concomitant]

REACTIONS (4)
  - DIARRHOEA [None]
  - HYPOAESTHESIA [None]
  - MOOD ALTERED [None]
  - SUICIDAL IDEATION [None]
